FAERS Safety Report 18071208 (Version 3)
Quarter: 2020Q4

REPORT INFORMATION
  Report Type: Other
  Country: FR (occurrence: FR)
  Receive Date: 20200727
  Receipt Date: 20201218
  Transmission Date: 20210113
  Serious: Yes (Hospitalization, Other)
  Sender: FDA-Public Use
  Company Number: FR-ASTELLAS-2020US024796

PATIENT
  Age: 82 Year
  Sex: Male

DRUGS (2)
  1. CLARITHROMYCINE [Interacting]
     Active Substance: CLARITHROMYCIN
     Indication: HELICOBACTER INFECTION
     Route: 048
     Dates: start: 20200611, end: 20200625
  2. ADVAGRAF [Suspect]
     Active Substance: TACROLIMUS
     Indication: RENAL TRANSPLANT
     Route: 048
     Dates: start: 2015, end: 20200703

REACTIONS (5)
  - Product prescribing error [Recovered/Resolved]
  - Immunosuppressant drug level increased [Recovered/Resolved]
  - Hepatitis [Recovered/Resolved]
  - Vomiting [Recovered/Resolved]
  - Drug interaction [Unknown]

NARRATIVE: CASE EVENT DATE: 202006
